FAERS Safety Report 5908367-X (Version None)
Quarter: 2008Q4

REPORT INFORMATION
  Report Type: 
  Country: None (occurrence: None)
  Receive Date: 20081006
  Receipt Date: 20080925
  Transmission Date: 20090506
  Serious: Yes (Hospitalization)
  Sender: FDA-Public Use
  Company Number: TR-ELI_LILLY_AND_COMPANY-TR200809005917

PATIENT
  Sex: Female

DRUGS (2)
  1. HUMALOG [Suspect]
     Indication: GESTATIONAL DIABETES
     Dosage: 6 UL, EACH MORNING
     Route: 058
     Dates: start: 20080101, end: 20080417
  2. HUMALOG [Suspect]
     Dosage: 8 UL, EACH EVENING
     Route: 058
     Dates: start: 20080101, end: 20080417

REACTIONS (4)
  - ASTHENIA [None]
  - DIABETES MELLITUS INADEQUATE CONTROL [None]
  - PAIN IN EXTREMITY [None]
  - PALPITATIONS [None]
